FAERS Safety Report 17285697 (Version 6)
Quarter: 2020Q3

REPORT INFORMATION
  Report Type: Report from Study
  Country: US (occurrence: US)
  Receive Date: 20200118
  Receipt Date: 20200925
  Transmission Date: 20201102
  Serious: No
  Sender: FDA-Public Use
  Company Number: NVSC2020US007171

PATIENT
  Age: 63 Year
  Sex: Female

DRUGS (1)
  1. ENTRESTO [Suspect]
     Active Substance: SACUBITRIL\VALSARTAN
     Indication: PRODUCT USED FOR UNKNOWN INDICATION
     Dosage: UNK, UNKNOWN
     Route: 048
     Dates: start: 201706

REACTIONS (4)
  - Weight decreased [Recovering/Resolving]
  - Blood pressure decreased [Recovering/Resolving]
  - Weight increased [Unknown]
  - Parathyroid gland enlargement [Not Recovered/Not Resolved]

NARRATIVE: CASE EVENT DATE: 201912
